FAERS Safety Report 8951217 (Version 1)
Quarter: 2012Q4

REPORT INFORMATION
  Report Type: Spontaneous
  Country: US (occurrence: None)
  Receive Date: 20121129
  Receipt Date: 20121129
  Transmission Date: 20130627
  Serious: Yes (Other)
  Sender: FDA-Public Use
  Company Number: 2012P1065399

PATIENT
  Age: 8 Year
  Sex: Male

DRUGS (8)
  1. LITHIUM [Suspect]
     Indication: AGGRESSIVE BEHAVIOUR
     Route: 048
  2. LITHIUM [Suspect]
     Indication: BIPOLAR DISORDER
     Route: 048
  3. LITHIUM [Suspect]
     Indication: AGGRESSIVE BEHAVIOUR
     Route: 048
  4. LITHIUM [Suspect]
     Indication: BIPOLAR DISORDER
     Route: 048
  5. GUANFACINE [Suspect]
     Indication: IMPULSIVE BEHAVIOUR
     Route: 048
  6. GUANFACINE [Suspect]
     Indication: AGGRESSIVE BEHAVIOUR
     Route: 048
  7. LISDEXAMFETAMINE [Suspect]
     Indication: ADHD
  8. RISPERIDONE [Concomitant]

REACTIONS (23)
  - Chest pain [None]
  - Dyspnoea [None]
  - Restlessness [None]
  - Trismus [None]
  - Dysarthria [None]
  - Dyspnoea [None]
  - Grimacing [None]
  - Dysphemia [None]
  - Anxiety [None]
  - Feeling jittery [None]
  - Logorrhoea [None]
  - Protrusion tongue [None]
  - Tardive dyskinesia [None]
  - Electrocardiogram abnormal [None]
  - Tachycardia [None]
  - Hypertension [None]
  - Antipsychotic drug level decreased [None]
  - Microcytic anaemia [None]
  - Psychomotor hyperactivity [None]
  - Pressure of speech [None]
  - Oppositional defiant disorder [None]
  - Akathisia [None]
  - Dyskinesia [None]
